FAERS Safety Report 8163251-9 (Version None)
Quarter: 2012Q1

REPORT INFORMATION
  Report Type: 
  Country: None (occurrence: None)
  Receive Date: 20120224
  Receipt Date: 20110601
  Transmission Date: 20120608
  Serious: No
  Sender: FDA-Public Use
  Company Number: US-PFIZER INC-K201100670

PATIENT
  Age: 50 Year
  Sex: Female
  Weight: 65.76 kg

DRUGS (1)
  1. FLECTOR [Suspect]
     Indication: INFLAMMATION
     Dosage: 0.5 PATCH, BID
     Route: 061
     Dates: start: 20110527, end: 20110529

REACTIONS (2)
  - TINNITUS [None]
  - HYPOAESTHESIA [None]
